FAERS Safety Report 8984436 (Version 1)
Quarter: 2012Q4

REPORT INFORMATION
  Report Type: Spontaneous
  Country: DK (occurrence: None)
  Receive Date: 20121214
  Receipt Date: 20121214
  Transmission Date: 20130627
  Serious: Yes (Other)
  Sender: FDA-Public Use
  Company Number: 2012MA013908

PATIENT
  Age: 64 Year
  Sex: Male

DRUGS (3)
  1. TRAMADOL HYDROCHLORIDE TABLETS [Suspect]
     Indication: NEUROPATHIC PAIN
     Route: 048
     Dates: start: 20121119, end: 20121119
  2. TACHIPIRINA [Concomitant]
  3. NEURONTIN [Concomitant]

REACTIONS (1)
  - Erythema [None]
